FAERS Safety Report 5091213-7 (Version None)
Quarter: 2006Q3

REPORT INFORMATION
  Report Type: 
  Country: None (occurrence: None)
  Receive Date: 20060825
  Receipt Date: 20060825
  Transmission Date: 20061208
  Serious: Yes (Life-Threatening, Hospitalization)
  Sender: FDA-Public Use
  Company Number: None

PATIENT
  Age: 18 Year
  Sex: Male
  Weight: 79 kg

DRUGS (6)
  1. METHOTREXATE [Suspect]
     Indication: ACUTE LYMPHOCYTIC LEUKAEMIA
     Dosage: SEE IMAGE
     Route: 037
     Dates: start: 20060727, end: 20060810
  2. METHOTREXATE [Suspect]
     Indication: ACUTE LYMPHOCYTIC LEUKAEMIA
     Dosage: SEE IMAGE
     Route: 037
     Dates: start: 20060803, end: 20060817
  3. CYTARABINE [Concomitant]
  4. NAFCILLIN IV [Concomitant]
  5. CEFTAZADIME IV [Concomitant]
  6. CAFFEINE SODIUM BENZOATE [Concomitant]

REACTIONS (1)
  - ISCHAEMIC STROKE [None]
